FAERS Safety Report 13604240 (Version 1)
Quarter: 2017Q2

REPORT INFORMATION
  Report Type: Spontaneous
  Country: US (occurrence: US)
  Receive Date: 20170602
  Receipt Date: 20170602
  Transmission Date: 20170830
  Serious: No
  Sender: FDA-Public Use
  Company Number: US-NOVEN PHARMACEUTICALS, INC.-US2016001216

PATIENT

DRUGS (3)
  1. NAPROXEN. [Concomitant]
     Active Substance: NAPROXEN
     Indication: ARTHRITIS
  2. LYRICA [Concomitant]
     Active Substance: PREGABALIN
     Indication: ARTHRITIS
  3. DAYTRANA [Suspect]
     Active Substance: METHYLPHENIDATE
     Indication: NERVOUS SYSTEM DISORDER
     Dosage: 30 MG, UNKNOWN
     Route: 062
     Dates: start: 2011, end: 20161221

REACTIONS (3)
  - Drug dose omission [Not Recovered/Not Resolved]
  - Somnolence [Unknown]
  - Off label use [Unknown]

NARRATIVE: CASE EVENT DATE: 2011
